FAERS Safety Report 19483753 (Version 1)
Quarter: 2021Q3

REPORT INFORMATION
  Report Type: Spontaneous
  Country: DE (occurrence: DE)
  Receive Date: 20210701
  Receipt Date: 20210701
  Transmission Date: 20211014
  Serious: Yes (Hospitalization)
  Sender: FDA-Public Use
  Company Number: DE-PFIZER INC-2021421989

PATIENT
  Age: 25 Year
  Sex: Female

DRUGS (1)
  1. LEIOS [Suspect]
     Active Substance: ETHINYL ESTRADIOL\LEVONORGESTREL
     Dosage: UNK

REACTIONS (2)
  - Diarrhoea [Unknown]
  - Colitis ulcerative [Unknown]
